FAERS Safety Report 9327167 (Version 2)
Quarter: 2013Q3

REPORT INFORMATION
  Report Type: Spontaneous
  Country: US (occurrence: US)
  Receive Date: 20130604
  Receipt Date: 20130708
  Transmission Date: 20140515
  Serious: No
  Sender: FDA-Public Use
  Company Number: US-AMGEN-USASP2013034492

PATIENT
  Age: 55 Year
  Sex: Female

DRUGS (1)
  1. ENBREL [Suspect]
     Indication: RHEUMATOID ARTHRITIS
     Dosage: 50 MG, QWK
     Route: 065
     Dates: start: 20090226, end: 20130506

REACTIONS (4)
  - Headache [Recovered/Resolved]
  - Pain in extremity [Unknown]
  - Nasal congestion [Recovered/Resolved]
  - Lymphadenopathy [Recovered/Resolved]
